FAERS Safety Report 6288722-1 (Version None)
Quarter: 2009Q3

REPORT INFORMATION
  Report Type: 
  Country: None (occurrence: None)
  Receive Date: 20090729
  Receipt Date: 20090717
  Transmission Date: 20100115
  Serious: Yes (Other)
  Sender: FDA-Public Use
  Company Number: PHEH2009US07944

PATIENT
  Sex: Female

DRUGS (3)
  1. ZOMETA [Suspect]
     Indication: BREAST CANCER
     Dosage: 4MG Q4WEEKS
     Route: 042
     Dates: start: 20050101, end: 20090101
  2. ZOMETA [Suspect]
     Indication: METASTASES TO BONE
     Dosage: 3MG Q4 WEEKS
     Route: 042
  3. ZOMETA [Suspect]
     Dosage: 2MG Q4 WEEKS AT MD DISCRETION
     Route: 042

REACTIONS (1)
  - NEUROPATHY PERIPHERAL [None]
